FAERS Safety Report 5701834-3 (Version None)
Quarter: 2008Q2

REPORT INFORMATION
  Report Type: 
  Country: None (occurrence: None)
  Receive Date: 20080411
  Receipt Date: 20080411
  Transmission Date: 20081010
  Serious: Yes (Death, Hospitalization)
  Sender: FDA-Public Use
  Company Number: None

PATIENT
  Sex: Female

DRUGS (1)
  1. HEPARIN [Suspect]
     Indication: DIALYSIS
     Dates: start: 20061201, end: 20080201

REACTIONS (2)
  - CARDIAC FAILURE CONGESTIVE [None]
  - THERAPEUTIC PRODUCT CONTAMINATION [None]
